FAERS Safety Report 17438487 (Version 1)
Quarter: 2020Q1

REPORT INFORMATION
  Report Type: Spontaneous
  Country: US (occurrence: US)
  Receive Date: 20200220
  Receipt Date: 20200220
  Transmission Date: 20200409
  Serious: Yes (Other)
  Sender: FDA-Public Use
  Company Number: US-AMGEN-USASP2020026286

PATIENT
  Age: 57 Year
  Sex: Female
  Weight: 107.94 kg

DRUGS (1)
  1. REPATHA [Suspect]
     Active Substance: EVOLOCUMAB
     Indication: BLOOD CHOLESTEROL INCREASED
     Dosage: UNK UNK, Q2WK
     Route: 065

REACTIONS (8)
  - Weight increased [Not Recovered/Not Resolved]
  - Swelling face [Unknown]
  - Tooth extraction [Unknown]
  - Generalised oedema [Not Recovered/Not Resolved]
  - Lyme disease [Unknown]
  - Rhinorrhoea [Not Recovered/Not Resolved]
  - Fibromyalgia [Unknown]
  - Nausea [Unknown]

NARRATIVE: CASE EVENT DATE: 202002
